FAERS Safety Report 16067634 (Version 2)
Quarter: 2019Q1

REPORT INFORMATION
  Report Type: Spontaneous
  Country: US (occurrence: US)
  Receive Date: 20190313
  Receipt Date: 20190320
  Transmission Date: 20190418
  Serious: No
  Sender: FDA-Public Use
  Company Number: US-NEUROCRINE BIOSCIENCES INC.-2019NBI00544

PATIENT
  Age: 41 Year
  Sex: Female

DRUGS (4)
  1. INGREZZA [Suspect]
     Active Substance: VALBENAZINE
     Route: 048
  2. INGREZZA [Suspect]
     Active Substance: VALBENAZINE
     Route: 048
     Dates: start: 201807
  3. LITHIUM. [Concomitant]
     Active Substance: LITHIUM
  4. INGREZZA [Suspect]
     Active Substance: VALBENAZINE
     Indication: TARDIVE DYSKINESIA
     Route: 048
     Dates: start: 20180630

REACTIONS (3)
  - Tardive dyskinesia [Unknown]
  - Sedation [Unknown]
  - Swollen tongue [Unknown]

NARRATIVE: CASE EVENT DATE: 20181221
